FAERS Safety Report 25587494 (Version 1)
Quarter: 2025Q3

REPORT INFORMATION
  Report Type: Spontaneous
  Country: CA (occurrence: CA)
  Receive Date: 20250721
  Receipt Date: 20250721
  Transmission Date: 20251021
  Serious: Yes (Hospitalization, Other)
  Sender: MYLAN
  Company Number: CA-MYLANLABS-2025M1060518

PATIENT
  Age: 64 Year
  Sex: Male

DRUGS (48)
  1. FONDAPARINUX [Suspect]
     Active Substance: FONDAPARINUX
     Indication: Acute coronary syndrome
     Dosage: 2500 MICROGRAM, QD (DAILY)
  2. FONDAPARINUX [Suspect]
     Active Substance: FONDAPARINUX
     Dosage: 2500 MICROGRAM, QD (DAILY)
     Route: 058
  3. FONDAPARINUX [Suspect]
     Active Substance: FONDAPARINUX
     Dosage: 2500 MICROGRAM, QD (DAILY)
     Route: 058
  4. FONDAPARINUX [Suspect]
     Active Substance: FONDAPARINUX
     Dosage: 2500 MICROGRAM, QD (DAILY)
  5. CLOPIDOGREL [Suspect]
     Active Substance: CLOPIDOGREL BISULFATE
     Indication: Product used for unknown indication
     Dosage: 75 MILLIGRAM, QD (DAILY)
  6. CLOPIDOGREL [Suspect]
     Active Substance: CLOPIDOGREL BISULFATE
     Dosage: 75 MILLIGRAM, QD (DAILY)
     Route: 048
  7. CLOPIDOGREL [Suspect]
     Active Substance: CLOPIDOGREL BISULFATE
     Dosage: 75 MILLIGRAM, QD (DAILY)
     Route: 048
  8. CLOPIDOGREL [Suspect]
     Active Substance: CLOPIDOGREL BISULFATE
     Dosage: 75 MILLIGRAM, QD (DAILY)
  9. ASPIRIN [Suspect]
     Active Substance: ASPIRIN
     Indication: Product used for unknown indication
     Dosage: 81 MILLIGRAM, QD (DAILY)
  10. ASPIRIN [Suspect]
     Active Substance: ASPIRIN
     Dosage: 81 MILLIGRAM, QD (DAILY)
     Route: 048
  11. ASPIRIN [Suspect]
     Active Substance: ASPIRIN
     Dosage: 81 MILLIGRAM, QD (DAILY)
     Route: 048
  12. ASPIRIN [Suspect]
     Active Substance: ASPIRIN
     Dosage: 81 MILLIGRAM, QD (DAILY)
  13. ACETAMINOPHEN [Concomitant]
     Active Substance: ACETAMINOPHEN
  14. ACETAMINOPHEN [Concomitant]
     Active Substance: ACETAMINOPHEN
     Route: 065
  15. ACETAMINOPHEN [Concomitant]
     Active Substance: ACETAMINOPHEN
     Route: 065
  16. ACETAMINOPHEN [Concomitant]
     Active Substance: ACETAMINOPHEN
  17. ATORVASTATIN [Concomitant]
     Active Substance: ATORVASTATIN
  18. ATORVASTATIN [Concomitant]
     Active Substance: ATORVASTATIN
     Route: 065
  19. ATORVASTATIN [Concomitant]
     Active Substance: ATORVASTATIN
     Route: 065
  20. ATORVASTATIN [Concomitant]
     Active Substance: ATORVASTATIN
  21. BISOPROLOL [Concomitant]
     Active Substance: BISOPROLOL
  22. BISOPROLOL [Concomitant]
     Active Substance: BISOPROLOL
     Route: 065
  23. BISOPROLOL [Concomitant]
     Active Substance: BISOPROLOL
     Route: 065
  24. BISOPROLOL [Concomitant]
     Active Substance: BISOPROLOL
  25. DAPAGLIFLOZIN [Concomitant]
     Active Substance: DAPAGLIFLOZIN
  26. DAPAGLIFLOZIN [Concomitant]
     Active Substance: DAPAGLIFLOZIN
     Route: 065
  27. DAPAGLIFLOZIN [Concomitant]
     Active Substance: DAPAGLIFLOZIN
     Route: 065
  28. DAPAGLIFLOZIN [Concomitant]
     Active Substance: DAPAGLIFLOZIN
  29. MAGNESIUM [Concomitant]
     Active Substance: MAGNESIUM
  30. MAGNESIUM [Concomitant]
     Active Substance: MAGNESIUM
     Route: 065
  31. MAGNESIUM [Concomitant]
     Active Substance: MAGNESIUM
     Route: 065
  32. MAGNESIUM [Concomitant]
     Active Substance: MAGNESIUM
  33. NICOTINE [Concomitant]
     Active Substance: NICOTINE
  34. NICOTINE [Concomitant]
     Active Substance: NICOTINE
     Route: 065
  35. NICOTINE [Concomitant]
     Active Substance: NICOTINE
     Route: 065
  36. NICOTINE [Concomitant]
     Active Substance: NICOTINE
  37. PREDNISONE [Concomitant]
     Active Substance: PREDNISONE
  38. PREDNISONE [Concomitant]
     Active Substance: PREDNISONE
     Route: 065
  39. PREDNISONE [Concomitant]
     Active Substance: PREDNISONE
     Route: 065
  40. PREDNISONE [Concomitant]
     Active Substance: PREDNISONE
  41. PREGABALIN [Concomitant]
     Active Substance: PREGABALIN
  42. PREGABALIN [Concomitant]
     Active Substance: PREGABALIN
     Route: 065
  43. PREGABALIN [Concomitant]
     Active Substance: PREGABALIN
     Route: 065
  44. PREGABALIN [Concomitant]
     Active Substance: PREGABALIN
  45. RAMIPRIL [Concomitant]
     Active Substance: RAMIPRIL
  46. RAMIPRIL [Concomitant]
     Active Substance: RAMIPRIL
     Route: 065
  47. RAMIPRIL [Concomitant]
     Active Substance: RAMIPRIL
     Route: 065
  48. RAMIPRIL [Concomitant]
     Active Substance: RAMIPRIL

REACTIONS (4)
  - Abdominal wall haematoma [Recovering/Resolving]
  - Haemoglobin decreased [Recovering/Resolving]
  - Retroperitoneal haemorrhage [Recovering/Resolving]
  - Abdominal pain [Recovering/Resolving]
